FAERS Safety Report 7897976-7 (Version None)
Quarter: 2011Q4

REPORT INFORMATION
  Report Type: 
  Country: None (occurrence: None)
  Receive Date: 20111107
  Receipt Date: 20111107
  Transmission Date: 20120403
  Serious: Yes (Other)
  Sender: FDA-Public Use
  Company Number: None

PATIENT
  Age: 41 Year
  Sex: Male
  Weight: 125.64 kg

DRUGS (1)
  1. METFORMIN HCL [Suspect]
     Indication: TYPE 2 DIABETES MELLITUS
     Dosage: 2 TABLETS
     Route: 048
     Dates: start: 20090115, end: 20111103

REACTIONS (5)
  - PRODUCT MEASURED POTENCY ISSUE [None]
  - DRUG INEFFECTIVE [None]
  - DIABETES MELLITUS INADEQUATE CONTROL [None]
  - PRODUCT FORMULATION ISSUE [None]
  - BLOOD GLUCOSE INCREASED [None]
